FAERS Safety Report 5783118-0 (Version None)
Quarter: 2008Q2

REPORT INFORMATION
  Report Type: 
  Country: None (occurrence: None)
  Receive Date: 20080619
  Receipt Date: 20080619
  Transmission Date: 20081010
  Serious: Yes (Other)
  Sender: FDA-Public Use
  Company Number: None

PATIENT
  Age: 53 Year
  Sex: Male
  Weight: 74.8435 kg

DRUGS (2)
  1. LIPITOR [Suspect]
     Dosage: 10 1 PO
     Route: 048
     Dates: start: 20000101, end: 20080620
  2. ZOCOR [Suspect]

REACTIONS (7)
  - AMNESIA [None]
  - CATARACT [None]
  - COGNITIVE DISORDER [None]
  - ERECTILE DYSFUNCTION [None]
  - MUSCLE ATROPHY [None]
  - MYALGIA [None]
  - SPEECH DISORDER [None]
